FAERS Safety Report 5730165-0 (Version None)
Quarter: 2008Q2

REPORT INFORMATION
  Report Type: 
  Country: None (occurrence: None)
  Receive Date: 20080507
  Receipt Date: 20080507
  Transmission Date: 20081010
  Serious: Yes (Life-Threatening, Hospitalization)
  Sender: FDA-Public Use
  Company Number: None

PATIENT
  Sex: Female
  Weight: 68.0396 kg

DRUGS (1)
  1. HEPARIN [Suspect]
     Indication: POSTOPERATIVE CARE
     Dosage: REPORTS ON FILE AT HOSPITAL
     Dates: start: 20060112, end: 20060119

REACTIONS (4)
  - ABSCESS [None]
  - FLUID OVERLOAD [None]
  - POST PROCEDURAL COMPLICATION [None]
  - THROMBOSIS [None]
